FAERS Safety Report 11695871 (Version 2)
Quarter: 2015Q4

REPORT INFORMATION
  Report Type: Other
  Country: US (occurrence: US)
  Receive Date: 20151104
  Receipt Date: 20151110
  Transmission Date: 20160304
  Serious: Yes (Other)
  Sender: FDA-Public Use
  Company Number: US-LUPIN PHARMACEUTICALS INC.-E2B_00004038

PATIENT
  Age: 61 Year
  Sex: Female
  Weight: 71.28 kg

DRUGS (1)
  1. LOSORTAN POTASSIUM [Suspect]
     Active Substance: LOSARTAN POTASSIUM
     Indication: HYPERTENSION
     Route: 048
     Dates: start: 20150730

REACTIONS (8)
  - Cardiac flutter [Recovered/Resolved]
  - Extrasystoles [Recovered/Resolved]
  - Paraesthesia [Recovered/Resolved]
  - Miosis [Recovering/Resolving]
  - Product substitution issue [Recovered/Resolved]
  - Hypoaesthesia [Recovered/Resolved]
  - Pain in extremity [Recovered/Resolved]
  - Anuria [Recovered/Resolved]

NARRATIVE: CASE EVENT DATE: 20150730
